FAERS Safety Report 25308849 (Version 6)
Quarter: 2025Q3

REPORT INFORMATION
  Report Type: Spontaneous
  Country: US (occurrence: US)
  Receive Date: 20250513
  Receipt Date: 20250903
  Transmission Date: 20251021
  Serious: No
  Sender: SANOFI AVENTIS
  Company Number: US-SA-2025SA134335

PATIENT
  Age: 67 Year
  Sex: Female

DRUGS (4)
  1. DUPIXENT [Suspect]
     Active Substance: DUPILUMAB
     Indication: Chronic obstructive pulmonary disease
     Route: 058
     Dates: start: 20250421, end: 20250421
  2. DUPIXENT [Suspect]
     Active Substance: DUPILUMAB
     Indication: Asthma
     Dosage: 300 MG, QOW
     Route: 058
     Dates: start: 202505
  3. ALBUTEROL [Concomitant]
     Active Substance: ALBUTEROL
  4. BREZTRI [Concomitant]
     Active Substance: BUDESONIDE\FORMOTEROL\GLYCOPYRROLATE

REACTIONS (16)
  - Neck pain [Not Recovered/Not Resolved]
  - Eosinophil count decreased [Unknown]
  - Lacrimation increased [Unknown]
  - Vision blurred [Unknown]
  - Paraesthesia [Not Recovered/Not Resolved]
  - Sinusitis [Unknown]
  - Sinus congestion [Unknown]
  - Cough [Unknown]
  - Drainage [Unknown]
  - Peripheral swelling [Unknown]
  - Joint stiffness [Not Recovered/Not Resolved]
  - Oxygen saturation decreased [Not Recovered/Not Resolved]
  - Blood glucose increased [Unknown]
  - Chronic obstructive pulmonary disease [Unknown]
  - Dyspnoea [Unknown]
  - Incorrect dose administered [Unknown]

NARRATIVE: CASE EVENT DATE: 20250101
